FAERS Safety Report 9337347 (Version 3)
Quarter: 2014Q1

REPORT INFORMATION
  Report Type: Report from Study
  Country: BR (occurrence: BR)
  Receive Date: 20130607
  Receipt Date: 20140106
  Transmission Date: 20141002
  Serious: Yes (Disabling, Other)
  Sender: FDA-Public Use
  Company Number: PHHY2013BR057836

PATIENT
  Age: 72 Year
  Sex: Female
  Weight: 65 kg

DRUGS (5)
  1. ACLASTA [Suspect]
     Indication: OSTEOPOROSIS
     Dosage: 5 MG/100ML, ANNUALLY
     Route: 042
     Dates: start: 20120131
  2. ACLASTA [Suspect]
     Dosage: 5 MG/100ML, ANNUALLY
     Route: 042
     Dates: start: 20130204
  3. ACLASTA [Suspect]
     Dosage: 5 MG/100ML, ANNUALLY
     Route: 042
  4. BETALOR [Concomitant]
     Indication: HYPERTENSION
     Dosage: 1 DF (1 TABLET), AT NIGHT
     Route: 048
     Dates: start: 20120116
  5. DIOVAN HCT [Concomitant]
     Indication: HYPERTENSION
     Dosage: 1 DF (1 TABLET), AT MORNING
     Route: 048
     Dates: start: 20120116

REACTIONS (8)
  - Abasia [Unknown]
  - Fracture [Unknown]
  - Osteoporotic fracture [Unknown]
  - Hip fracture [Unknown]
  - Femur fracture [Unknown]
  - Fall [Recovering/Resolving]
  - Gait disturbance [Unknown]
  - Asthenia [Unknown]
